FAERS Safety Report 6211213-0 (Version None)
Quarter: 2009Q2

REPORT INFORMATION
  Report Type: 
  Country: None (occurrence: None)
  Receive Date: 20090602
  Receipt Date: 20090521
  Transmission Date: 20091009
  Serious: Yes (Other)
  Sender: FDA-Public Use
  Company Number: US-JNJFOC-20090403523

PATIENT
  Sex: Female
  Weight: 83.46 kg

DRUGS (7)
  1. REMICADE [Suspect]
     Indication: RHEUMATOID ARTHRITIS
     Dosage: RECEIVED APPROXIMATELY 24 INFUSIONS
     Route: 042
  2. ENBREL [Suspect]
     Indication: RHEUMATOID ARTHRITIS
     Route: 058
  3. TOPROL-XL [Concomitant]
     Indication: HYPERTENSION
     Dosage: HAS TAKEN IT FOR YEARS
  4. PREMARIN [Concomitant]
     Dosage: HAS TAKEN IT FOR YEARS
  5. PREDNISONE [Concomitant]
     Indication: RHEUMATOID ARTHRITIS
  6. LEFLUNOMIDE [Concomitant]
     Indication: RHEUMATOID ARTHRITIS
  7. LASIX [Concomitant]

REACTIONS (1)
  - MYCOSIS FUNGOIDES [None]
